FAERS Safety Report 18654907 (Version 3)
Quarter: 2021Q1

REPORT INFORMATION
  Report Type: Spontaneous
  Country: IT (occurrence: IT)
  Receive Date: 20201223
  Receipt Date: 20210305
  Transmission Date: 20210419
  Serious: Yes (Hospitalization, Other)
  Sender: FDA-Public Use
  Company Number: IT-PFIZER INC-2020495372

PATIENT
  Age: 20 Year
  Sex: Female

DRUGS (3)
  1. FLURAZEPAM [Suspect]
     Active Substance: FLURAZEPAM HYDROCHLORIDE
     Dosage: 180 MG (TOTAL)
     Route: 048
     Dates: start: 20201207, end: 20201207
  2. OLANZAPINE. [Suspect]
     Active Substance: OLANZAPINE
     Dosage: 50 MG (TOTAL)
     Route: 048
     Dates: start: 20201207, end: 20201207
  3. SERTRALINE HCL [Suspect]
     Active Substance: SERTRALINE HYDROCHLORIDE
     Dosage: 1500 MG (TOTAL)
     Route: 048
     Dates: start: 20201207, end: 20201207

REACTIONS (3)
  - Suicide attempt [Recovering/Resolving]
  - Intentional overdose [Recovering/Resolving]
  - Hypotension [Recovering/Resolving]

NARRATIVE: CASE EVENT DATE: 20201207
